FAERS Safety Report 24933422 (Version 1)
Quarter: 2025Q1

REPORT INFORMATION
  Report Type: Spontaneous
  Country: US (occurrence: US)
  Receive Date: 20250206
  Receipt Date: 20250206
  Transmission Date: 20250408
  Serious: No
  Sender: STALLERGENES
  Company Number: US-STALCOR-2024-AER-02996

PATIENT
  Age: 5 Year
  Sex: Female

DRUGS (3)
  1. PALFORZIA [Suspect]
     Active Substance: PEANUT
     Indication: Food allergy
     Dosage: 0.5 AND 1 AND1.5 AND 3 AND 6 MG: IDE: ADMINISTER IN A SINGLE DAY UNDER THE SUPERVISION OF A HEALTHCA
     Route: 048
     Dates: start: 202412
  2. EPIPEN JR [Concomitant]
     Active Substance: EPINEPHRINE
     Indication: Product used for unknown indication
  3. ZYRTEC [Concomitant]
     Active Substance: CETIRIZINE HYDROCHLORIDE
     Indication: Product used for unknown indication

REACTIONS (2)
  - Urticaria [Unknown]
  - Wheezing [Unknown]

NARRATIVE: CASE EVENT DATE: 20241201
